FAERS Safety Report 6461106-9 (Version None)
Quarter: 2009Q4

REPORT INFORMATION
  Report Type: 
  Country: None (occurrence: None)
  Receive Date: 20091130
  Receipt Date: 20091123
  Transmission Date: 20100525
  Serious: Yes (Hospitalization)
  Sender: FDA-Public Use
  Company Number: B0608608A

PATIENT
  Sex: Male

DRUGS (8)
  1. CLAVULIN [Suspect]
     Indication: INFLUENZA
     Route: 048
     Dates: start: 20091016, end: 20091016
  2. TICLID [Concomitant]
     Route: 065
  3. ASPIRIN [Concomitant]
     Route: 065
  4. COVERSYL [Concomitant]
     Route: 065
  5. LOPRESSOR [Concomitant]
     Route: 065
  6. GLUCOPHAGE [Concomitant]
     Route: 065
  7. ESKIM [Concomitant]
     Route: 065
  8. ROSUVASTATIN [Concomitant]
     Route: 065

REACTIONS (3)
  - DRY MOUTH [None]
  - GENERALISED ERYTHEMA [None]
  - VOMITING [None]
